FAERS Safety Report 4614195-8 (Version None)
Quarter: 2005Q1

REPORT INFORMATION
  Report Type: 
  Country: None (occurrence: None)
  Receive Date: 20050315
  Receipt Date: 20050304
  Transmission Date: 20050727
  Serious: Yes (Hospitalization)
  Sender: FDA-Public Use
  Company Number: 2005040464

PATIENT
  Age: 53 Year
  Sex: Female
  Weight: 63.5036 kg

DRUGS (2)
  1. NEURONTIN [Suspect]
     Indication: BIPOLAR DISORDER
     Dosage: 1200 MG (400 MG, 3 IN 1 D), ORAL
     Route: 048
     Dates: start: 20021001
  2. CARBAMAZEPINE [Concomitant]

REACTIONS (26)
  - ABDOMINAL DISTENSION [None]
  - AMNESIA [None]
  - BALANCE DISORDER [None]
  - CHEST PAIN [None]
  - CONFUSIONAL STATE [None]
  - CONSTIPATION [None]
  - CONTUSION [None]
  - DEAFNESS [None]
  - DIZZINESS [None]
  - DRY MOUTH [None]
  - DYSPNOEA [None]
  - ECCHYMOSIS [None]
  - FATIGUE [None]
  - HAEMORRHAGE [None]
  - HEART RATE INCREASED [None]
  - HEPATOCELLULAR DAMAGE [None]
  - HYPERVENTILATION [None]
  - INSOMNIA [None]
  - MOOD ALTERED [None]
  - NAUSEA [None]
  - OEDEMA PERIPHERAL [None]
  - RENAL DISORDER [None]
  - SOMNOLENCE [None]
  - THROAT TIGHTNESS [None]
  - TREMOR [None]
  - VISION BLURRED [None]
